FAERS Safety Report 4900369-5 (Version None)
Quarter: 2006Q1

REPORT INFORMATION
  Report Type: 
  Country: None (occurrence: None)
  Receive Date: 20060203
  Receipt Date: 20060130
  Transmission Date: 20060701
  Serious: Yes (Other)
  Sender: FDA-Public Use
  Company Number: PHEH2006US01476

PATIENT
  Age: 14 Year
  Sex: Male

DRUGS (5)
  1. TRILEPTAL [Suspect]
     Indication: AFFECTIVE DISORDER
     Dates: start: 20051004
  2. ABILIFY [Concomitant]
  3. PROZAC [Concomitant]
  4. RITALIN [Concomitant]
  5. HUMAN GROWTH HORMONE, RECOMBINANT [Concomitant]

REACTIONS (6)
  - AGGRESSION [None]
  - AGITATION [None]
  - DEPRESSION [None]
  - DRUG INEFFECTIVE [None]
  - HOMICIDAL IDEATION [None]
  - IRRITABILITY [None]
